FAERS Safety Report 12622000 (Version 1)
Quarter: 2016Q3

REPORT INFORMATION
  Report Type: Spontaneous
  Country: US (occurrence: US)
  Receive Date: 20160804
  Receipt Date: 20160804
  Transmission Date: 20161109
  Serious: No
  Sender: FDA-Public Use
  Company Number: US-BEH-2016071831

PATIENT
  Sex: Male
  Weight: 70.3 kg

DRUGS (16)
  1. TIOTROPIUM BROMIDE MONOHYDRATE [Concomitant]
     Active Substance: TIOTROPIUM BROMIDE MONOHYDRATE
  2. FERROUS SULFATE. [Concomitant]
     Active Substance: FERROUS SULFATE
  3. ASPIRIN E.C [Concomitant]
     Active Substance: ASPIRIN
  4. ALBUTEROL                          /00139501/ [Concomitant]
     Active Substance: ALBUTEROL
  5. OXYGEN. [Concomitant]
     Active Substance: OXYGEN
  6. EPIPEN [Concomitant]
     Active Substance: EPINEPHRINE
  7. GUAIFENESIN. [Concomitant]
     Active Substance: GUAIFENESIN
  8. ZEMAIRA [Suspect]
     Active Substance: .ALPHA.1-PROTEINASE INHIBITOR HUMAN
     Indication: ALPHA-1 ANTI-TRYPSIN DEFICIENCY
     Dosage: 60 MG/KG, QW
     Route: 042
  9. LMX                                /00033401/ [Concomitant]
  10. DIPHENHYDRAMINE. [Concomitant]
     Active Substance: DIPHENHYDRAMINE
  11. SIMVASTATIN. [Concomitant]
     Active Substance: SIMVASTATIN
  12. MAGNESIUM [Concomitant]
     Active Substance: MAGNESIUM
  13. PROTONIX [Concomitant]
     Active Substance: PANTOPRAZOLE SODIUM
  14. HYDROCHLOROTHIAZIDE. [Concomitant]
     Active Substance: HYDROCHLOROTHIAZIDE
  15. DOXYCYCLINE. [Concomitant]
     Active Substance: DOXYCYCLINE
  16. SODIUM CHLORIDE. [Concomitant]
     Active Substance: SODIUM CHLORIDE

REACTIONS (1)
  - Upper respiratory tract infection [Unknown]
